FAERS Safety Report 8398845-9 (Version None)
Quarter: 2012Q2

REPORT INFORMATION
  Report Type: 
  Country: None (occurrence: None)
  Receive Date: 20120524
  Receipt Date: 20120514
  Transmission Date: 20120825
  Serious: Yes (Other)
  Sender: FDA-Public Use
  Company Number: 2012SP020278

PATIENT
  Age: 50 Year
  Sex: Female

DRUGS (4)
  1. PRISTIQ [Concomitant]
  2. VICTRELIS [Suspect]
     Indication: PRODUCT USED FOR UNKNOWN INDICATION
  3. PEGATRON (PEGYLATED INTERFERON ALFA-2B W/RIBAVIRIN) [Suspect]
     Indication: PRODUCT USED FOR UNKNOWN INDICATION
     Dates: start: 20010101
  4. PEGATRON (PEGYLATED INTERFERON ALFA-2B W/RIBAVIRIN) [Suspect]
     Indication: PRODUCT USED FOR UNKNOWN INDICATION
     Dates: start: 20120222

REACTIONS (11)
  - SUICIDAL IDEATION [None]
  - VIRAL DIARRHOEA [None]
  - RASH GENERALISED [None]
  - VOMITING [None]
  - DYSPNOEA [None]
  - DRY SKIN [None]
  - MASS [None]
  - ANAEMIA [None]
  - INAPPROPRIATE SCHEDULE OF DRUG ADMINISTRATION [None]
  - FATIGUE [None]
  - NECK MASS [None]
